FAERS Safety Report 8129818-9 (Version None)
Quarter: 2012Q1

REPORT INFORMATION
  Report Type: 
  Country: None (occurrence: None)
  Receive Date: 20120210
  Receipt Date: 20120210
  Transmission Date: 20120608
  Serious: Yes (Other)
  Sender: FDA-Public Use
  Company Number: None

PATIENT
  Age: 45 Year
  Sex: Female
  Weight: 75.749 kg

DRUGS (3)
  1. CYMBALTA [Suspect]
     Indication: PAIN
     Dosage: 60.0 MG
     Route: 048
     Dates: start: 20110915, end: 20111117
  2. CYMBALTA [Suspect]
     Indication: FIBROMYALGIA
     Dosage: 60.0 MG
     Route: 048
     Dates: start: 20110915, end: 20111117
  3. CYMBALTA [Concomitant]
     Dosage: 30 MG
     Route: 048
     Dates: start: 20110107, end: 20110204

REACTIONS (11)
  - DIZZINESS [None]
  - NYSTAGMUS [None]
  - DEPRESSED MOOD [None]
  - VOMITING [None]
  - WITHDRAWAL SYNDROME [None]
  - IMPAIRED WORK ABILITY [None]
  - DIARRHOEA [None]
  - PARAESTHESIA [None]
  - FATIGUE [None]
  - DISTURBANCE IN ATTENTION [None]
  - AGITATION [None]
